FAERS Safety Report 17167342 (Version 1)
Quarter: 2019Q4

REPORT INFORMATION
  Report Type: Spontaneous
  Country: GB (occurrence: GB)
  Receive Date: 20191218
  Receipt Date: 20191218
  Transmission Date: 20200122
  Serious: Yes (Other)
  Sender: FDA-Public Use
  Company Number: GB-ABBVIE-19K-167-3197028-00

PATIENT
  Age: 71 Year
  Sex: Female

DRUGS (1)
  1. LEVODOPA/CARBIDOPA [Suspect]
     Active Substance: CARBIDOPA\LEVODOPA
     Indication: PRODUCT USED FOR UNKNOWN INDICATION
     Route: 065

REACTIONS (6)
  - Joint dislocation [Unknown]
  - Emotional distress [Unknown]
  - Hip fracture [Unknown]
  - Gait inability [Unknown]
  - Tremor [Unknown]
  - Drug ineffective [Unknown]
